FAERS Safety Report 9295371 (Version 1)
Quarter: 2013Q1

REPORT INFORMATION
  Report Type: Spontaneous
  Country: US (occurrence: None)
  Receive Date: 20121227
  Receipt Date: 20121227
  Transmission Date: 20140127
  Serious: Yes (Other)
  Sender: FDA-Public Use
  Company Number: PHEH2011US0108913

PATIENT
  Age: 5 Year
  Sex: Male
  Weight: 19.69 kg

DRUGS (2)
  1. EXJADE [Suspect]
     Indication: IRON OVERLOAD
     Route: 048
     Dates: start: 20111007, end: 20111102
  2. HYDROXYUREA (HYDROXYCARBAMIDE) [Concomitant]

REACTIONS (1)
  - Hepatic enzyme increased [None]
